FAERS Safety Report 7868220 (Version 2)
Quarter: 2013Q2

REPORT INFORMATION
  Report Type: Spontaneous
  Country: MX (occurrence: MX)
  Receive Date: 20110323
  Receipt Date: 20130408
  Transmission Date: 20140414
  Serious: Yes (Hospitalization, Other)
  Sender: FDA-Public Use
  Company Number: PHHY2011MX20202

PATIENT
  Age: 82 Year
  Sex: Female

DRUGS (1)
  1. EXFORGE [Suspect]
     Dosage: 1 DF, DAILY
     Route: 048
     Dates: start: 20110305, end: 20110306

REACTIONS (1)
  - Blood pressure increased [Recovered/Resolved]
